FAERS Safety Report 7377602-6 (Version None)
Quarter: 2011Q1

REPORT INFORMATION
  Report Type: 
  Country: None (occurrence: None)
  Receive Date: 20110328
  Receipt Date: 20110316
  Transmission Date: 20110831
  Serious: Yes (Hospitalization, Other)
  Sender: FDA-Public Use
  Company Number: DE-SANOFI-AVENTIS-2011SA016072

PATIENT
  Age: 73 Year
  Sex: Male

DRUGS (10)
  1. OXALIPLATIN [Suspect]
     Route: 041
     Dates: start: 20110308, end: 20110308
  2. FLUOROURACIL [Suspect]
     Route: 041
     Dates: start: 20110222, end: 20110222
  3. CETUXIMAB [Suspect]
     Route: 041
     Dates: start: 20110222, end: 20110222
  4. FOLINIC ACID [Suspect]
     Route: 041
     Dates: start: 20110308, end: 20110308
  5. OXALIPLATIN [Suspect]
     Route: 041
     Dates: start: 20110222, end: 20110222
  6. FLUOROURACIL [Suspect]
     Route: 041
     Dates: start: 20110308, end: 20110308
  7. SODIUM PICOSULFATE [Concomitant]
     Route: 065
     Dates: start: 20101201, end: 20110315
  8. CETUXIMAB [Suspect]
     Route: 041
     Dates: start: 20110308, end: 20110308
  9. FOLINIC ACID [Suspect]
     Route: 041
     Dates: start: 20110222, end: 20110222
  10. MOVIPREP [Concomitant]
     Route: 065
     Dates: start: 20101201, end: 20110315

REACTIONS (5)
  - PYREXIA [None]
  - ABDOMINAL PAIN [None]
  - HYPOKALAEMIA [None]
  - URINARY RETENTION [None]
  - DIARRHOEA [None]
